FAERS Safety Report 6663685-5 (Version None)
Quarter: 2010Q2

REPORT INFORMATION
  Report Type: 
  Country: None (occurrence: None)
  Receive Date: 20100401
  Receipt Date: 20100318
  Transmission Date: 20101027
  Serious: Yes (Other)
  Sender: FDA-Public Use
  Company Number: EC-ROCHE-692167

PATIENT
  Sex: Female
  Weight: 59.9 kg

DRUGS (1)
  1. ISOTRETINOIN [Suspect]
     Indication: ACNE
     Dosage: FREQUENCY: DAILY
     Route: 048
     Dates: start: 20090101, end: 20090601

REACTIONS (1)
  - ABORTION INDUCED [None]
